FAERS Safety Report 8213444-7 (Version None)
Quarter: 2012Q1

REPORT INFORMATION
  Report Type: 
  Country: None (occurrence: None)
  Receive Date: 20120315
  Receipt Date: 20120306
  Transmission Date: 20120608
  Serious: Yes (Hospitalization, Other)
  Sender: FDA-Public Use
  Company Number: BR-ROCHE-727980

PATIENT
  Sex: Female
  Weight: 68.5 kg

DRUGS (7)
  1. ASPIRIN [Concomitant]
  2. SINVALIP [Concomitant]
  3. ENALAPRIL MALEATE [Concomitant]
  4. ARAVA [Concomitant]
  5. METHOTREXATE [Concomitant]
  6. ACTEMRA [Suspect]
     Indication: RHEUMATOID ARTHRITIS
     Dosage: ROUTE: ENDOVENOUS, FORM: INFUSION; HAD RECEIVED TWO INFUSIONS
     Route: 042
     Dates: start: 20100507, end: 20100701
  7. DICLOFENAC [Suspect]
     Indication: PAIN IN EXTREMITY
     Route: 065

REACTIONS (11)
  - ARTERITIS [None]
  - CARDIOVASCULAR DISORDER [None]
  - ARTERIAL OCCLUSIVE DISEASE [None]
  - PNEUMONIA [None]
  - SYSTEMIC LUPUS ERYTHEMATOSUS [None]
  - GASTRITIS [None]
  - DRUG INEFFECTIVE [None]
  - HAEMOLYTIC ANAEMIA [None]
  - PYREXIA [None]
  - URINARY TRACT INFECTION [None]
  - RESPIRATORY FAILURE [None]
